FAERS Safety Report 9341752 (Version 1)
Quarter: 2013Q2

REPORT INFORMATION
  Report Type: Spontaneous
  Country: GB (occurrence: None)
  Receive Date: 20130606
  Receipt Date: 20130606
  Transmission Date: 20140414
  Serious: Yes (Hospitalization)
  Sender: FDA-Public Use
  Company Number: ACET20130017

PATIENT
  Age: 39 Year
  Sex: Male
  Weight: 91 kg

DRUGS (4)
  1. Q-PAP [Suspect]
     Indication: INTENTIONAL OVERDOSE
     Dosage: 15 GM, SINGLE DOSE, ORAL
     Route: 048
  2. COCAINE [Suspect]
     Indication: DRUG ABUSE
  3. CANNABIS [Suspect]
     Indication: DRUG ABUSE
  4. ALCOHOL [Suspect]
     Indication: DRUG ABUSE
     Dosage: OVER 40 UNITS, UNK

REACTIONS (5)
  - Hepatotoxicity [None]
  - Overdose [None]
  - Refusal of treatment by patient [None]
  - Encephalopathy [None]
  - Acute hepatic failure [None]
